FAERS Safety Report 7968133-0 (Version None)
Quarter: 2011Q4

REPORT INFORMATION
  Report Type: 
  Country: None (occurrence: None)
  Receive Date: 20111209
  Receipt Date: 20111128
  Transmission Date: 20120403
  Serious: Yes (Disabling, Other)
  Sender: FDA-Public Use
  Company Number: PHHY2011FR105025

PATIENT
  Sex: Female

DRUGS (7)
  1. RITALIN [Suspect]
     Indication: NARCOLEPSY
     Dosage: UNK UKN, UNK
     Dates: start: 20060101, end: 20081001
  2. MODAFANIL [Suspect]
     Indication: NARCOLEPSY
     Dosage: UNK UKN, UNK
  3. DEXEDRINE [Suspect]
     Indication: NARCOLEPSY
     Dosage: UNK UKN, UNK
     Dates: start: 20081001, end: 20110401
  4. AMLODIPINE BESYLATE [Concomitant]
     Indication: HYPERTENSION
     Dosage: UNK UKN, UNK
     Dates: start: 20110301
  5. MEDIATOR [Suspect]
     Dosage: UNK UKN, UNK
     Dates: start: 20040101, end: 20060101
  6. XYREM [Concomitant]
     Indication: NARCOLEPSY
     Dosage: UNK UKN, UNK
  7. CONCERTA [Suspect]
     Indication: NARCOLEPSY
     Dosage: UNK UKN, UNK
     Dates: start: 20060101, end: 20080101

REACTIONS (4)
  - HYPERTENSION [None]
  - AORTIC VALVE INCOMPETENCE [None]
  - CARDIAC VALVE DISEASE [None]
  - DYSPNOEA EXERTIONAL [None]
